FAERS Safety Report 17736694 (Version 1)
Quarter: 2020Q2

REPORT INFORMATION
  Report Type: Report from Study
  Country: None (occurrence: US)
  Receive Date: 20200501
  Receipt Date: 20200501
  Transmission Date: 20200714
  Serious: Yes (Other)
  Sender: FDA-Public Use
  Company Number: US-ABBVIE-20K-163-3380208-00

PATIENT
  Age: 70 Year
  Sex: Female

DRUGS (3)
  1. HUMIRA [Suspect]
     Active Substance: ADALIMUMAB
     Indication: PSORIATIC ARTHROPATHY
  2. HUMIRA [Suspect]
     Active Substance: ADALIMUMAB
     Indication: PSORIASIS
     Route: 058
  3. VITAMINS NOS [Concomitant]
     Active Substance: VITAMINS
     Indication: PRODUCT USED FOR UNKNOWN INDICATION

REACTIONS (9)
  - Visual impairment [Unknown]
  - Neuropathy peripheral [Unknown]
  - Dyspnoea [Not Recovered/Not Resolved]
  - Pain [Not Recovered/Not Resolved]
  - Sensory disturbance [Unknown]
  - Speech disorder [Not Recovered/Not Resolved]
  - Claustrophobia [Not Recovered/Not Resolved]
  - Dyskinesia [Not Recovered/Not Resolved]
  - Tremor [Not Recovered/Not Resolved]

NARRATIVE: CASE EVENT DATE: 202004
